FAERS Safety Report 9036187 (Version 1)
Quarter: 2013Q1

REPORT INFORMATION
  Report Type: Spontaneous
  Country: US (occurrence: None)
  Receive Date: 20130117
  Receipt Date: 20130117
  Transmission Date: 20140127
  Serious: Yes (Life-Threatening, Other)
  Sender: FDA-Public Use
  Company Number: None

PATIENT
  Age: 71 Year
  Sex: Female
  Weight: 60.33 kg

DRUGS (2)
  1. OXYCODONE [Suspect]
     Indication: NERVE INJURY
     Dosage: 15 MG  3 X DAY  ORAL
     Route: 048
     Dates: start: 201209, end: 201212
  2. OXYCODONE [Suspect]
     Indication: CHEMOTHERAPY
     Dosage: 15 MG  3 X DAY  ORAL
     Route: 048
     Dates: start: 201209, end: 201212

REACTIONS (9)
  - Drug ineffective [None]
  - Nausea [None]
  - Vomiting [None]
  - Weight decreased [None]
  - Suicidal ideation [None]
  - Disturbance in attention [None]
  - Dizziness [None]
  - Fatigue [None]
  - Decreased activity [None]
